FAERS Safety Report 5671761-9 (Version None)
Quarter: 2008Q1

REPORT INFORMATION
  Report Type: 
  Country: None (occurrence: None)
  Receive Date: 20080318
  Receipt Date: 20080306
  Transmission Date: 20080703
  Serious: Yes (Other)
  Sender: FDA-Public Use
  Company Number: GB-TYCO HEALTHCARE/MALLINCKRODT-T200800518

PATIENT

DRUGS (11)
  1. TECHNESCAN [Suspect]
     Indication: BONE SCAN
     Dosage: UNK, SINGLE
     Route: 042
     Dates: start: 20080114, end: 20080114
  2. TECHNETIUM TC 99M [Suspect]
     Indication: BONE SCAN
     Dosage: 555 MBQ, SINGLE
     Route: 042
     Dates: start: 20080114, end: 20080114
  3. IBUPROFEN [Concomitant]
  4. ATENOLOL [Concomitant]
  5. LISINOPRIL [Concomitant]
  6. DOSULEPIN [Concomitant]
  7. CODEINE SUL TAB [Concomitant]
  8. PARACETAMOL [Concomitant]
  9. ASPIRIN [Concomitant]
  10. ANASTROZOLE [Concomitant]
  11. DOXAZOSIN MESYLATE [Concomitant]

REACTIONS (4)
  - BRADYCARDIA [None]
  - CIRCULATORY COLLAPSE [None]
  - LOSS OF CONSCIOUSNESS [None]
  - SWOLLEN TONGUE [None]
